FAERS Safety Report 7906380-4 (Version None)
Quarter: 2011Q4

REPORT INFORMATION
  Report Type: 
  Country: None (occurrence: None)
  Receive Date: 20111110
  Receipt Date: 20111108
  Transmission Date: 20120403
  Serious: Yes (Life-Threatening, Hospitalization)
  Sender: FDA-Public Use
  Company Number: JP-B.I. PHARMACEUTICALS,INC./RIDGEFIELD-2011-BP-24065NB

PATIENT
  Sex: Male
  Weight: 60.2 kg

DRUGS (4)
  1. DILTIAZEM HCL [Concomitant]
     Dosage: 200 MG
     Route: 048
     Dates: start: 20050101
  2. PRADAXA [Suspect]
     Dosage: 300 MG
     Route: 048
     Dates: start: 20110608, end: 20110726
  3. SUNRYTHM [Concomitant]
     Dosage: 150 MG
     Route: 048
     Dates: start: 20100101
  4. LEVOTHYROXINE SODIUM [Concomitant]
     Dosage: 75 MCG
     Route: 048
     Dates: start: 20030101

REACTIONS (4)
  - DISSEMINATED INTRAVASCULAR COAGULATION [None]
  - HAEMATURIA [None]
  - SEPTIC SHOCK [None]
  - PYELONEPHRITIS [None]
